FAERS Safety Report 5200973-3 (Version None)
Quarter: 2007Q1

REPORT INFORMATION
  Report Type: 
  Country: None (occurrence: None)
  Receive Date: 20070103
  Receipt Date: 20061220
  Transmission Date: 20070707
  Serious: Yes (Hospitalization)
  Sender: FDA-Public Use
  Company Number: GXKR2006JP06950

PATIENT
  Age: 72 Year
  Sex: Male

DRUGS (4)
  1. CIPROFLOXACIN [Suspect]
  2. LEVOFLOXACIN [Suspect]
  3. CEFTAZIDIME [Suspect]
  4. ITRACONAZOLE [Concomitant]

REACTIONS (4)
  - CYANOSIS [None]
  - INTERSTITIAL LUNG DISEASE [None]
  - LYMPHOCYTE STIMULATION TEST POSITIVE [None]
  - NO THERAPEUTIC RESPONSE [None]
